FAERS Safety Report 17671632 (Version 1)
Quarter: 2020Q2

REPORT INFORMATION
  Report Type: Spontaneous
  Country: GB (occurrence: GB)
  Receive Date: 20200415
  Receipt Date: 20200415
  Transmission Date: 20200713
  Serious: Yes (Death)
  Sender: FDA-Public Use
  Company Number: GB-MYLANLABS-2020M1038292

PATIENT
  Age: 33 Year
  Sex: Female
  Weight: 84 kg

DRUGS (13)
  1. AMOXICILLIN. [Concomitant]
     Active Substance: AMOXICILLIN
     Dosage: 15 MILLILITER, QD
     Dates: start: 20190814, end: 20190820
  2. IBUPROFEN. [Concomitant]
     Active Substance: IBUPROFEN
     Dosage: 1 DOSAGE FORM, Q4H, TAKE ONE EVERY 4 HRS
     Dates: start: 20131118
  3. AMLODIPINE [Concomitant]
     Active Substance: AMLODIPINE BESYLATE
     Dosage: 1 DOSAGE FORM, QD
     Dates: start: 20170405
  4. SALBUTAMOL [Suspect]
     Active Substance: ALBUTEROL
     Indication: PRODUCT USED FOR UNKNOWN INDICATION
     Dosage: 2 DOSAGE FORM, QD, 5MG/ML
     Route: 065
     Dates: start: 20131118
  5. ACETYLSALICYLIC ACID [Concomitant]
     Active Substance: ASPIRIN
     Dosage: 1 DOSAGE FORM, QD
     Dates: start: 20130722
  6. ACICLOVIR [Concomitant]
     Active Substance: ACYCLOVIR
     Dosage: 5 DOSAGE FORM, QD
     Dates: start: 20130722
  7. MICROGYNON                         /00022701/ [Concomitant]
     Active Substance: ETHINYL ESTRADIOL\LEVONORGESTREL ACETATE
     Dosage: 1 DOSAGE FORM, AS DIRECTED
     Dates: start: 20140107
  8. BISOPROLOL [Concomitant]
     Active Substance: BISOPROLOL
     Dosage: 1 DOSAGE FORM, QD
     Dates: start: 20150611
  9. PARACETAMOL [Concomitant]
     Active Substance: ACETAMINOPHEN
     Dosage: UNK, TAKE 1 OR 2 4 TIMES/DAY
     Dates: start: 20140808
  10. DIPROBASE [Concomitant]
     Active Substance: CHLOROCRESOL
     Dosage: UNK UNK, PRN, APPLY
     Dates: start: 20050527
  11. INDAPAMIDE. [Concomitant]
     Active Substance: INDAPAMIDE
     Dosage: 1 DOSAGE FORM, QD, TAKE IN MORNING
     Dates: start: 20151202
  12. LEVONELLE                          /00318901/ [Concomitant]
     Active Substance: LEVONORGESTREL
     Dosage: 1 DOSAGE FORM,AS DIRECTED
     Dates: start: 20140107
  13. RAMIPRIL. [Concomitant]
     Active Substance: RAMIPRIL
     Dosage: 1 DOSAGE FORM, QD
     Dates: start: 20180404

REACTIONS (1)
  - Death [Fatal]
